FAERS Safety Report 20988754 (Version 1)
Quarter: 2022Q2

REPORT INFORMATION
  Report Type: Spontaneous
  Country: US (occurrence: US)
  Receive Date: 20220621
  Receipt Date: 20220621
  Transmission Date: 20220721
  Serious: No
  Sender: FDA-Public Use
  Company Number: US-BRISTOL-MYERS SQUIBB COMPANY-2022-061407

PATIENT
  Age: 74 Year
  Sex: Male
  Weight: 114 kg

DRUGS (7)
  1. REVLIMID [Suspect]
     Active Substance: LENALIDOMIDE
     Indication: Plasma cell myeloma
     Route: 048
     Dates: start: 20190809
  2. ELIQUIS [Concomitant]
     Active Substance: APIXABAN
     Indication: Plasma cell myeloma
  3. VITAMINS [Concomitant]
     Active Substance: VITAMINS
     Indication: Plasma cell myeloma
  4. VIAGRA [Concomitant]
     Active Substance: SILDENAFIL CITRATE
     Indication: Plasma cell myeloma
  5. VITAMIN D3 [Concomitant]
     Active Substance: CHOLECALCIFEROL
     Indication: Plasma cell myeloma
  6. B-COMPLEX [VITAMIN B COMPLEX] [Concomitant]
     Indication: Plasma cell myeloma
  7. PSEUDOEPHEDRINE [Concomitant]
     Active Substance: PSEUDOEPHEDRINE
     Indication: Plasma cell myeloma

REACTIONS (2)
  - Muscle spasms [Unknown]
  - Diarrhoea [Unknown]
